FAERS Safety Report 7489891-8 (Version None)
Quarter: 2011Q2

REPORT INFORMATION
  Report Type: 
  Country: None (occurrence: None)
  Receive Date: 20110517
  Receipt Date: 20110517
  Transmission Date: 20111010
  Serious: No
  Sender: FDA-Public Use
  Company Number: None

PATIENT

DRUGS (1)
  1. BUMINATE 5% [Suspect]

REACTIONS (2)
  - DEVICE DIFFICULT TO USE [None]
  - INJURY ASSOCIATED WITH DEVICE [None]
